FAERS Safety Report 16960274 (Version 1)
Quarter: 2019Q4

REPORT INFORMATION
  Report Type: Spontaneous
  Country: US (occurrence: US)
  Receive Date: 20191025
  Receipt Date: 20191025
  Transmission Date: 20200122
  Serious: No
  Sender: FDA-Public Use
  Company Number: US-PFIZER INC-2019456677

PATIENT
  Sex: Female
  Weight: 54.42 kg

DRUGS (1)
  1. XALKORI [Suspect]
     Active Substance: CRIZOTINIB
     Dosage: UNK
     Dates: start: 20010919

REACTIONS (4)
  - Secretion discharge [Unknown]
  - Vomiting [Recovering/Resolving]
  - Chest pain [Unknown]
  - Chest discomfort [Unknown]
